FAERS Safety Report 16263027 (Version 5)
Quarter: 2019Q3

REPORT INFORMATION
  Report Type: Report from Study
  Country: NL (occurrence: NL)
  Receive Date: 20190502
  Receipt Date: 20190716
  Transmission Date: 20191004
  Serious: Yes (Death, Hospitalization)
  Sender: FDA-Public Use
  Company Number: NL-ROCHE-2310659

PATIENT
  Age: 60 Year
  Sex: Male
  Weight: 65.3 kg

DRUGS (7)
  1. VENETOCLAX. [Suspect]
     Active Substance: VENETOCLAX
     Indication: CHRONIC LYMPHOCYTIC LEUKAEMIA
     Dosage: DATE OF LAST DOSE PRIOR TO EVENT ONSET: 20/DEC/2018?CYCLE 2: 50 MG (1 TABL. AT 50 MG), D1-7; 100 MG
     Route: 048
     Dates: start: 20181123, end: 20190219
  2. ELTROMBOPAG [Concomitant]
     Active Substance: ELTROMBOPAG
     Route: 048
     Dates: start: 20190308, end: 20190410
  3. VALPROIC ACID. [Concomitant]
     Active Substance: VALPROIC ACID
     Route: 065
     Dates: start: 1979, end: 20190410
  4. METOPROLOL. [Concomitant]
     Active Substance: METOPROLOL
     Route: 048
     Dates: start: 20180920, end: 20190410
  5. OBINUTUZUMAB. [Suspect]
     Active Substance: OBINUTUZUMAB
     Indication: CHRONIC LYMPHOCYTIC LEUKAEMIA
     Dosage: CYCLES 2-6: 1000 MG, D1, Q28D?DATE OF LAST DOSE PRIOR TO EVENT ONSET: 11/OCT/2018
     Route: 042
     Dates: start: 20180927, end: 20190219
  6. IBRUTINIB [Suspect]
     Active Substance: IBRUTINIB
     Indication: CHRONIC LYMPHOCYTIC LEUKAEMIA
     Dosage: DATE OF LAST DOSE PRIOR TO EVENT ONSET: 20/DEC/2018?CYCLES 13-36: 420 MG, D1-28, Q28D
     Route: 048
     Dates: start: 20180927, end: 20190219
  7. FLUTICASONE. [Concomitant]
     Active Substance: FLUTICASONE
     Route: 065
     Dates: start: 2009, end: 20190410

REACTIONS (2)
  - Respiratory failure [Fatal]
  - Scleroderma [Not Recovered/Not Resolved]

NARRATIVE: CASE EVENT DATE: 20190405
